FAERS Safety Report 13434040 (Version 1)
Quarter: 2017Q2

REPORT INFORMATION
  Report Type: Spontaneous
  Country: US (occurrence: US)
  Receive Date: 20170412
  Receipt Date: 20170412
  Transmission Date: 20170830
  Serious: Yes (Hospitalization)
  Sender: FDA-Public Use
  Company Number: US-JNJFOC-20170405860

PATIENT
  Age: 79 Year
  Sex: Female
  Weight: 78.5 kg

DRUGS (2)
  1. ONGLYZA [Concomitant]
     Active Substance: SAXAGLIPTIN HYDROCHLORIDE
     Indication: TYPE 2 DIABETES MELLITUS
     Route: 048
     Dates: start: 20160405
  2. XARELTO [Suspect]
     Active Substance: RIVAROXABAN
     Indication: PROPHYLAXIS
     Route: 048
     Dates: start: 20140814, end: 20161230

REACTIONS (2)
  - Iron deficiency anaemia [Recovered/Resolved]
  - Chest discomfort [Unknown]

NARRATIVE: CASE EVENT DATE: 20161227
